FAERS Safety Report 4323148-9 (Version None)
Quarter: 2004Q1

REPORT INFORMATION
  Report Type: 
  Country: None (occurrence: None)
  Receive Date: 20040322
  Receipt Date: 20040308
  Transmission Date: 20041129
  Serious: Yes (Hospitalization, Other)
  Sender: FDA-Public Use
  Company Number: US-JNJFOC-20040103821

PATIENT
  Age: 65 Year
  Sex: Male
  Weight: 85.2762 kg

DRUGS (34)
  1. NATRECOR [Suspect]
     Indication: CARDIAC FAILURE CONGESTIVE
     Dosage: SEE IMAGE
     Route: 042
     Dates: start: 20030601, end: 20030601
  2. NATRECOR [Suspect]
     Indication: CARDIAC FAILURE CONGESTIVE
     Dosage: SEE IMAGE
     Route: 042
     Dates: start: 20030611, end: 20030612
  3. NATRECOR [Suspect]
     Indication: CARDIAC FAILURE CONGESTIVE
     Dosage: SEE IMAGE
     Route: 042
     Dates: start: 20030612, end: 20030612
  4. NATRECOR [Suspect]
     Indication: CARDIAC FAILURE CONGESTIVE
     Dosage: SEE IMAGE
     Route: 042
     Dates: start: 20030612, end: 20030613
  5. NATRECOR [Suspect]
     Indication: CARDIAC FAILURE CONGESTIVE
     Dosage: SEE IMAGE
     Route: 042
     Dates: start: 20030613, end: 20030613
  6. NATRECOR [Suspect]
     Indication: CARDIAC FAILURE CONGESTIVE
     Dosage: SEE IMAGE
     Route: 042
     Dates: start: 20030613, end: 20030620
  7. NATRECOR [Suspect]
     Indication: CARDIAC FAILURE CONGESTIVE
     Dosage: SEE IMAGE
     Route: 042
     Dates: start: 20030620, end: 20030620
  8. NATRECOR [Suspect]
     Indication: CARDIAC FAILURE CONGESTIVE
     Dosage: SEE IMAGE
     Route: 042
     Dates: start: 20030620, end: 20030627
  9. NATRECOR [Suspect]
     Indication: CARDIAC FAILURE CONGESTIVE
     Dosage: SEE IMAGE
     Route: 042
     Dates: start: 20031211, end: 20040226
  10. NATRECOR [Suspect]
     Indication: CARDIAC FAILURE CONGESTIVE
     Dosage: SEE IMAGE
     Route: 042
     Dates: start: 20031211, end: 20040226
  11. HEPARIN [Suspect]
     Indication: COAGULOPATHY
     Dosage: 1800 UNITS PER HOUR WEIGHT BASES INTRAVENOUS DRIP
     Route: 041
     Dates: start: 20030601, end: 20030601
  12. HEPARIN [Suspect]
     Indication: COAGULOPATHY
     Dosage: 1800 UNITS PER HOUR WEIGHT BASES INTRAVENOUS DRIP
     Route: 041
     Dates: start: 20030612, end: 20030616
  13. LISINOPRIL [Concomitant]
  14. LEVOXYL [Concomitant]
  15. ASPIRIN [Concomitant]
  16. DIGOXIN [Concomitant]
  17. ZOCOR [Concomitant]
  18. METOPROLOL (METOPROLOL) [Concomitant]
  19. COMBIVENT [Concomitant]
  20. ALLOPURINAL (ALLOPURINAL) [Concomitant]
  21. COLCHICINE (COLCHICINE) [Concomitant]
  22. LASIX [Concomitant]
  23. ZAROXOLYN [Concomitant]
  24. NPH INSULIN [Concomitant]
  25. INSULIN LENTE (INSULIN ZINC SUSPENSION) [Concomitant]
  26. NITRO PASTE (GLYCERYL TRINITRATE) [Concomitant]
  27. ACETAMINOPHEN [Concomitant]
  28. ALBUTEROL [Concomitant]
  29. SIMVASTATIN [Concomitant]
  30. IPRATROPIUM BROMIDE [Concomitant]
  31. ZOLPIDEM TARTRATE [Concomitant]
  32. RANITIDINE [Concomitant]
  33. SENNA (SENNA) [Concomitant]
  34. DOCUSATE SODIUM (DOCUSATE SODIUM) [Concomitant]

REACTIONS (22)
  - ACTIVATED PARTIAL THROMBOPLASTIN TIME PROLONGED [None]
  - ATRIAL FIBRILLATION [None]
  - ATRIAL FLUTTER [None]
  - BLOOD CREATINE INCREASED [None]
  - BLOOD UREA INCREASED [None]
  - BRADYCARDIA [None]
  - CARDIAC FAILURE CONGESTIVE [None]
  - COMA [None]
  - FLANK PAIN [None]
  - HAEMATOCRIT DECREASED [None]
  - HAEMATURIA [None]
  - HAEMOPTYSIS [None]
  - HYPERCAPNIA [None]
  - HYPOTENSION [None]
  - INCISION SITE HAEMORRHAGE [None]
  - PLATELET COUNT DECREASED [None]
  - POST PROCEDURAL COMPLICATION [None]
  - POST PROCEDURAL HAEMORRHAGE [None]
  - RESPIRATORY ARREST [None]
  - RETROPERITONEAL HAEMORRHAGE [None]
  - STAPHYLOCOCCAL BACTERAEMIA [None]
  - WEIGHT INCREASED [None]
